FAERS Safety Report 8362474-3 (Version None)
Quarter: 2012Q2

REPORT INFORMATION
  Report Type: 
  Country: None (occurrence: None)
  Receive Date: 20120514
  Receipt Date: 20120514
  Transmission Date: 20120825
  Serious: Yes (Hospitalization)
  Sender: FDA-Public Use
  Company Number: None

PATIENT
  Age: 73 Year
  Sex: Female
  Weight: 76.6 kg

DRUGS (1)
  1. XARELTO [Suspect]
     Indication: ATRIAL FIBRILLATION
     Dosage: ONCE DAILY PO
     Route: 048
     Dates: start: 20120301, end: 20120510

REACTIONS (9)
  - HEADACHE [None]
  - HEMIPARESIS [None]
  - APHASIA [None]
  - HEMIANOPIA [None]
  - CEREBRAL HAEMORRHAGE [None]
  - TREATMENT NONCOMPLIANCE [None]
  - CONFUSIONAL STATE [None]
  - AGITATION [None]
  - ASTHENIA [None]
